FAERS Safety Report 6542545-4 (Version None)
Quarter: 2010Q1

REPORT INFORMATION
  Report Type: 
  Country: None (occurrence: None)
  Receive Date: 20100119
  Receipt Date: 20100105
  Transmission Date: 20100710
  Serious: Yes (Other)
  Sender: FDA-Public Use
  Company Number: US-GENENTECH-296928

PATIENT
  Sex: Female
  Weight: 94.3 kg

DRUGS (7)
  1. RITUXIMAB [Suspect]
     Indication: RHEUMATOID ARTHRITIS
     Dosage: 1000 MG, UNK
     Route: 042
     Dates: start: 20030101
  2. RITUXIMAB [Suspect]
     Dosage: 1000 MG, UNK
     Route: 042
     Dates: start: 20050216
  3. METHOTREXATE [Suspect]
     Indication: RHEUMATOID ARTHRITIS
     Dosage: 10 MG, UNK
     Route: 048
     Dates: start: 20090127, end: 20091001
  4. PREDNISONE [Suspect]
     Indication: RHEUMATOID ARTHRITIS
     Dosage: 3 MG, QD
     Route: 048
     Dates: start: 20090118
  5. FOLIC ACID [Suspect]
     Indication: RHEUMATOID ARTHRITIS
     Dosage: 1 MG, QD
     Route: 048
     Dates: start: 20010101, end: 20091001
  6. NORCO [Suspect]
     Indication: RHEUMATOID ARTHRITIS
     Dosage: 335 MG, PRN
     Route: 048
     Dates: start: 20070914
  7. CRYSELLE [Suspect]
     Indication: CONTRACEPTION
     Dosage: 1 TABLET, QD
     Route: 048
     Dates: start: 20090122, end: 20091221

REACTIONS (1)
  - SUICIDAL IDEATION [None]
